FAERS Safety Report 5925237-1 (Version None)
Quarter: 2008Q4

REPORT INFORMATION
  Report Type: 
  Country: None (occurrence: None)
  Receive Date: 20081020
  Receipt Date: 20081020
  Transmission Date: 20090506
  Serious: Yes (Other)
  Sender: FDA-Public Use
  Company Number: None

PATIENT
  Age: 46 Year
  Sex: Female
  Weight: 101.6057 kg

DRUGS (1)
  1. GLEEVEC [Suspect]
     Indication: CHRONIC MYELOID LEUKAEMIA
     Dosage: 400MG DAILY PO
     Route: 048
     Dates: start: 20020115

REACTIONS (4)
  - ALOPECIA [None]
  - EYE HAEMORRHAGE [None]
  - EYE PAIN [None]
  - PAIN OF SKIN [None]
